FAERS Safety Report 8328388-X (Version None)
Quarter: 2012Q2

REPORT INFORMATION
  Report Type: 
  Country: None (occurrence: None)
  Receive Date: 20120502
  Receipt Date: 20120423
  Transmission Date: 20120825
  Serious: Yes (Hospitalization)
  Sender: FDA-Public Use
  Company Number: US-BAYER-2011-114236

PATIENT
  Age: 28 Year
  Sex: Female
  Weight: 47.619 kg

DRUGS (10)
  1. PROMETHAZINE [Concomitant]
     Indication: NAUSEA
     Dosage: APPLY ONE-HALF OF CONTENTS OF 1 SYRINGE PRF (INTERPRETED AS: AS NEEDED) NAUSEA + VOMITING
     Route: 003
     Dates: start: 20070504, end: 20070509
  2. YASMIN [Suspect]
     Indication: CONTRACEPTION
     Dosage: UNK
     Route: 048
     Dates: start: 20070201, end: 20070401
  3. PHENERGAN [Concomitant]
     Dosage: 25 UNK, UNK
  4. STADOL [Concomitant]
     Dosage: 4 MG, UNK
  5. HYDROCODONE BITARTRATE [Concomitant]
     Dosage: 5/500 EVERY 4 HOURS AS NEEDED
     Route: 048
  6. DIAZEPAM [Concomitant]
     Indication: MUSCLE SPASMS
     Dosage: 5 MG, Q4HR
     Route: 048
     Dates: start: 20070203
  7. FERROUS SULFATE TAB [Concomitant]
     Dosage: 325 MG, QD
     Route: 048
  8. PROMETHAZINE [Concomitant]
     Indication: VOMITING
  9. CELEBREX [Concomitant]
     Indication: PAIN
     Dosage: 200MG CAPSULES; TK ONE OR TWO CAPSULES BID  TWICE DAILY)PRF PAIN
     Dates: start: 20070203
  10. COUMADIN [Concomitant]
     Dosage: 4 MG, QD

REACTIONS (6)
  - PAIN [None]
  - GENERAL PHYSICAL HEALTH DETERIORATION [None]
  - INJURY [None]
  - PULMONARY EMBOLISM [None]
  - EMOTIONAL DISTRESS [None]
  - ANXIETY [None]
